FAERS Safety Report 24000177 (Version 1)
Quarter: 2024Q2

REPORT INFORMATION
  Report Type: Spontaneous
  Country: AU (occurrence: AU)
  Receive Date: 20240621
  Receipt Date: 20240621
  Transmission Date: 20240716
  Serious: Yes (Other)
  Sender: FDA-Public Use
  Company Number: AU-SEPTODONT-2024018725

PATIENT
  Age: 63 Year
  Sex: Female

DRUGS (1)
  1. ARTICAINE HYDROCHLORIDE\EPINEPHRINE BITARTRATE [Suspect]
     Active Substance: ARTICAINE HYDROCHLORIDE\EPINEPHRINE BITARTRATE
     Indication: Dental local anaesthesia
     Dosage: 2.2 ML ?1 CARTRIDGE
     Route: 004
     Dates: start: 20240415, end: 20240415

REACTIONS (5)
  - Neurotoxicity [Recovered/Resolved]
  - Procedural pain [Recovered/Resolved]
  - Middle insomnia [Recovered/Resolved]
  - Gingival ulceration [Recovered/Resolved]
  - Gingivitis [Recovered/Resolved]

NARRATIVE: CASE EVENT DATE: 20240422
